FAERS Safety Report 7866264-7 (Version None)
Quarter: 2011Q4

REPORT INFORMATION
  Report Type: 
  Country: None (occurrence: None)
  Receive Date: 20111028
  Receipt Date: 20110520
  Transmission Date: 20120403
  Serious: No
  Sender: FDA-Public Use
  Company Number: US-GLAXOSMITHKLINE-A0928358A

PATIENT
  Age: 69 Year
  Sex: Female

DRUGS (4)
  1. ALBUTEROL [Concomitant]
  2. OXYGEN [Concomitant]
  3. COMBIVENT [Concomitant]
  4. ADVAIR DISKUS 100/50 [Suspect]
     Indication: CHRONIC OBSTRUCTIVE PULMONARY DISEASE
     Dosage: 1PUFF TWICE PER DAY
     Route: 055
     Dates: start: 20110506

REACTIONS (4)
  - DRUG INEFFECTIVE [None]
  - MIDDLE INSOMNIA [None]
  - INCREASED BRONCHIAL SECRETION [None]
  - DRY MOUTH [None]
